FAERS Safety Report 8536418-5 (Version None)
Quarter: 2012Q3

REPORT INFORMATION
  Report Type: 
  Country: None (occurrence: None)
  Receive Date: 20120725
  Receipt Date: 20120716
  Transmission Date: 20120928
  Serious: Yes (Hospitalization)
  Sender: FDA-Public Use
  Company Number: US-INCYTE CORPORATION-2012IN001298

PATIENT
  Sex: Female

DRUGS (3)
  1. JAKAFI [Suspect]
     Indication: MYELOFIBROSIS
     Dosage: 10 MG, BID
     Route: 048
     Dates: start: 20120101, end: 20120101
  2. OXYCODONE HCL [Concomitant]
  3. JAKAFI [Suspect]
     Indication: SPLENOMEGALY

REACTIONS (2)
  - DRUG INEFFECTIVE [None]
  - SPLENECTOMY [None]
